FAERS Safety Report 8975408 (Version 2)
Quarter: 2013Q1

REPORT INFORMATION
  Report Type: Spontaneous
  Country: BR (occurrence: BR)
  Receive Date: 20121219
  Receipt Date: 20130115
  Transmission Date: 20140127
  Serious: Yes (Other)
  Sender: FDA-Public Use
  Company Number: PHHY2012BR116680

PATIENT
  Sex: Female
  Weight: 43 kg

DRUGS (5)
  1. EXJADE [Suspect]
     Indication: IRON OVERLOAD
     Dosage: 03 DF, UNK
     Route: 048
  2. FOLIC ACID [Concomitant]
     Dosage: UNK UKN, UNK
     Dates: start: 1995
  3. DESFERAL [Concomitant]
     Dosage: UNK UKN, UNK
     Dates: start: 1999
  4. FERRIPROX [Concomitant]
     Dosage: UNK UKN, UNK
     Dates: start: 2007, end: 2010
  5. DIPIRONE [Concomitant]
     Dosage: UNK UKN, UNK

REACTIONS (5)
  - Migraine [Recovered/Resolved]
  - Serum ferritin increased [Recovered/Resolved]
  - Pallor [Recovered/Resolved]
  - Headache [Recovered/Resolved]
  - Abdominal pain upper [Recovered/Resolved]
